FAERS Safety Report 14990444 (Version 1)
Quarter: 2018Q2

REPORT INFORMATION
  Report Type: Spontaneous
  Country: US (occurrence: US)
  Receive Date: 20180608
  Receipt Date: 20180608
  Transmission Date: 20180711
  Serious: No
  Sender: FDA-Public Use
  Company Number: US-ROCHE-2009888

PATIENT
  Sex: Male
  Weight: 104.42 kg

DRUGS (6)
  1. ACTEMRA [Suspect]
     Active Substance: TOCILIZUMAB
     Indication: RHEUMATOID ARTHRITIS
     Dosage: ONGOING
     Route: 058
  2. PLAVIX [Concomitant]
     Active Substance: CLOPIDOGREL BISULFATE
     Route: 048
     Dates: start: 20160907
  3. BUTALBITAL [Concomitant]
     Active Substance: BUTALBITAL
     Route: 048
     Dates: start: 20160907, end: 20161123
  4. NEURONTIN [Concomitant]
     Active Substance: GABAPENTIN
     Route: 048
     Dates: start: 20161123
  5. PROBIOTIC (ENZYMES, INC) [Concomitant]
     Route: 048
     Dates: start: 20160907
  6. LIPITOR [Concomitant]
     Active Substance: ATORVASTATIN CALCIUM
     Route: 048
     Dates: start: 20160907

REACTIONS (1)
  - Injection site pruritus [Not Recovered/Not Resolved]
